FAERS Safety Report 24908295 (Version 3)
Quarter: 2025Q2

REPORT INFORMATION
  Report Type: Report from Study
  Country: CN (occurrence: CN)
  Receive Date: 20250131
  Receipt Date: 20250403
  Transmission Date: 20250717
  Serious: Yes (Other)
  Sender: ROCHE
  Company Number: CN-ROCHE-10000193313

PATIENT
  Age: 61 Year
  Sex: Male
  Weight: 61.5 kg

DRUGS (73)
  1. POLATUZUMAB VEDOTIN [Suspect]
     Active Substance: POLATUZUMAB VEDOTIN
     Indication: Diffuse large B-cell lymphoma
     Route: 042
     Dates: start: 20240520, end: 20240520
  2. RITUXIMAB [Suspect]
     Active Substance: RITUXIMAB
     Indication: Diffuse large B-cell lymphoma
     Route: 042
     Dates: start: 20240516, end: 20240517
  3. CYCLOPHOSPHAMIDE [Suspect]
     Active Substance: CYCLOPHOSPHAMIDE
     Indication: Diffuse large B-cell lymphoma
     Route: 042
     Dates: start: 20240518, end: 20240518
  4. DEXAMETHASONE [Suspect]
     Active Substance: DEXAMETHASONE
     Indication: Diffuse large B-cell lymphoma
     Route: 042
     Dates: start: 20240513, end: 20240521
  5. DEXAMETHASONE [Suspect]
     Active Substance: DEXAMETHASONE
     Route: 042
     Dates: start: 20240513, end: 20240521
  6. DEXAMETHASONE [Suspect]
     Active Substance: DEXAMETHASONE
     Route: 042
     Dates: start: 20240703, end: 20240703
  7. DOXORUBICIN HYDROCHLORIDE [Suspect]
     Active Substance: DOXORUBICIN HYDROCHLORIDE
     Indication: Diffuse large B-cell lymphoma
     Route: 042
     Dates: end: 20240522
  8. MITOXANTRONE [Suspect]
     Active Substance: MITOXANTRONE HYDROCHLORIDE
     Indication: Diffuse large B-cell lymphoma
     Route: 065
  9. Rabeprazole Sodium for Injection [Concomitant]
     Route: 042
     Dates: start: 20240513, end: 20240617
  10. LORATADINE [Concomitant]
     Active Substance: LORATADINE
     Route: 048
     Dates: start: 20240513, end: 20240513
  11. SODIUM BICARBONATE [Concomitant]
     Active Substance: SODIUM BICARBONATE
     Route: 042
     Dates: start: 20240513, end: 20240515
  12. SODIUM BICARBONATE [Concomitant]
     Active Substance: SODIUM BICARBONATE
     Route: 042
     Dates: start: 20240516, end: 20240602
  13. SODIUM BICARBONATE [Concomitant]
     Active Substance: SODIUM BICARBONATE
     Route: 042
     Dates: start: 20240701, end: 20240701
  14. Carbazochrome Sodium Sulfonate and Sodium Chloride Injection [Concomitant]
     Route: 042
     Dates: start: 20240514, end: 20240530
  15. FLUCONAZOLE [Concomitant]
     Active Substance: FLUCONAZOLE
     Route: 048
     Dates: start: 20240514, end: 20240527
  16. LEVOFLOXACIN [Concomitant]
     Active Substance: LEVOFLOXACIN
     Route: 048
     Dates: start: 20240515, end: 20240521
  17. FEBUXOSTAT [Concomitant]
     Active Substance: FEBUXOSTAT
     Route: 048
     Dates: start: 20240520, end: 20240527
  18. LEVETIRACETAM [Concomitant]
     Active Substance: LEVETIRACETAM
     Route: 048
     Dates: start: 20240521, end: 20240529
  19. LEVETIRACETAM [Concomitant]
     Active Substance: LEVETIRACETAM
     Route: 048
     Dates: start: 20240702, end: 20240702
  20. Sandostatin (Octreotide Acetate Injection) [Concomitant]
     Route: 058
     Dates: start: 20240521, end: 20240529
  21. FUROSEMIDE [Concomitant]
     Active Substance: FUROSEMIDE
     Route: 048
     Dates: start: 20240529, end: 20240617
  22. Pancreatin Enteric-coated Capsules [Concomitant]
     Route: 048
     Dates: start: 20240603, end: 20240617
  23. Potassium Chloride Sustained-release Tablets [Concomitant]
     Route: 048
     Dates: start: 20240530, end: 20240608
  24. Calcium Carbonate and Vitamin D3 Tablets [Concomitant]
     Dosage: DRUG DOSE FIRST ADMINISTERED IS 1 TABLET
     Route: 048
     Dates: start: 20240602, end: 20240617
  25. Calcium Carbonate and Vitamin D3 Tablets [Concomitant]
     Route: 048
     Dates: start: 20240701, end: 20240701
  26. Ubidecarenone Tablets [Concomitant]
     Route: 048
     Dates: start: 20240605, end: 20240617
  27. URSODIOL [Concomitant]
     Active Substance: URSODIOL
     Route: 048
     Dates: start: 20240613, end: 20240617
  28. Beraprost Sodium Tablets [Concomitant]
     Route: 048
     Dates: start: 20240513, end: 20240513
  29. ATORVASTATIN CALCIUM [Concomitant]
     Active Substance: ATORVASTATIN CALCIUM
     Route: 048
     Dates: start: 20240513, end: 20240513
  30. ESTAZOLAM [Concomitant]
     Active Substance: ESTAZOLAM
     Route: 048
     Dates: start: 20240513, end: 20240513
  31. Levofloxacin And Sodium Chloride Injection [Concomitant]
     Route: 042
     Dates: start: 20240513, end: 20240513
  32. Somatostatin for Injection [Concomitant]
     Route: 042
     Dates: start: 20240514, end: 20240514
  33. Fosappitan dimeglumine for injection [Concomitant]
     Indication: Prophylaxis
     Route: 030
     Dates: start: 20240516, end: 20240516
  34. Fosappitan dimeglumine for injection [Concomitant]
     Route: 030
     Dates: start: 20240520, end: 20240520
  35. Fosappitan dimeglumine for injection [Concomitant]
     Route: 042
     Dates: start: 20240521, end: 20240521
  36. Fosappitan dimeglumine for injection [Concomitant]
     Route: 030
     Dates: start: 20240611, end: 20240611
  37. Fosappitan dimeglumine for injection [Concomitant]
     Route: 030
     Dates: start: 20240612, end: 20240612
  38. Fosappitan dimeglumine for injection [Concomitant]
     Route: 042
     Dates: start: 20240613, end: 20240613
  39. Fosappitan dimeglumine for injection [Concomitant]
     Route: 030
     Dates: start: 20240702, end: 20240702
  40. Fosappitan dimeglumine for injection [Concomitant]
     Route: 042
     Dates: start: 20240703, end: 20240703
  41. DEXAMETHASONE SODIUM PHOSPHATE [Concomitant]
     Active Substance: DEXAMETHASONE SODIUM PHOSPHATE
     Route: 042
     Dates: start: 20240520, end: 20240520
  42. DEXAMETHASONE SODIUM PHOSPHATE [Concomitant]
     Active Substance: DEXAMETHASONE SODIUM PHOSPHATE
     Route: 042
     Dates: start: 20240611, end: 20240611
  43. DEXAMETHASONE SODIUM PHOSPHATE [Concomitant]
     Active Substance: DEXAMETHASONE SODIUM PHOSPHATE
     Route: 042
     Dates: start: 20240612, end: 20240612
  44. DEXAMETHASONE SODIUM PHOSPHATE [Concomitant]
     Active Substance: DEXAMETHASONE SODIUM PHOSPHATE
     Route: 042
     Dates: start: 20240702, end: 20240702
  45. Dexrazoxan for injection [Concomitant]
     Indication: Prophylaxis
     Route: 042
     Dates: start: 20240521, end: 20240521
  46. Dexrazoxan for injection [Concomitant]
     Route: 042
     Dates: start: 20240703, end: 20240703
  47. Urokinase for Injection [Concomitant]
     Dates: start: 20240523, end: 20240523
  48. Torsemide Injection [Concomitant]
     Route: 042
     Dates: start: 20240605, end: 20240605
  49. Torsemide Injection [Concomitant]
     Route: 042
     Dates: start: 20240512, end: 20240612
  50. ANF-RHO [Concomitant]
     Active Substance: ANF-RHO
     Route: 058
     Dates: start: 20240615, end: 20240615
  51. ANF-RHO [Concomitant]
     Active Substance: ANF-RHO
     Route: 058
     Dates: start: 20240704, end: 20240704
  52. Bon-One  (Alfacalcidol Tablets) [Concomitant]
     Dosage: DRUG DOSE FIRST ADMINISTERED IS 2 TABLET
     Route: 048
     Dates: start: 20240604, end: 20240617
  53. Roxatidine Acetate Hydrochloride For Injection [Concomitant]
     Route: 042
     Dates: start: 20240701, end: 20240701
  54. CALCIUM GLUCONATE\DEXTROSE\MAGNESIUM CHLORIDE\POTASSIUM CHLORIDE\SODIU [Concomitant]
     Active Substance: CALCIUM GLUCONATE\DEXTROSE\MAGNESIUM CHLORIDE\POTASSIUM CHLORIDE\SODIUM ACETATE\SODIUM CHLORIDE\TRIS
     Route: 042
     Dates: start: 20240701, end: 20240701
  55. Magnesium Isoglycyrrhizinate Injection [Concomitant]
     Route: 042
     Dates: start: 20240701, end: 20240701
  56. Magnesium Isoglycyrrhizinate Injection [Concomitant]
     Route: 042
     Dates: start: 20240613, end: 20240617
  57. Compound Amiloride Hydrochloride Tablets [Concomitant]
     Route: 048
     Dates: start: 20240701, end: 20240701
  58. Human Immunoglobulin?pH4?for Intravenous Injection [Concomitant]
     Route: 042
     Dates: start: 20240704, end: 20240704
  59. Polyene Phosphatidylcholine Capsules [Concomitant]
     Route: 042
     Dates: start: 20240514, end: 20240613
  60. Polyene Phosphatidylcholine Capsules [Concomitant]
     Route: 042
     Dates: start: 20240613, end: 20240617
  61. Recombinant Human Erythropoietin Injection(CHO cell) [Concomitant]
     Route: 058
     Dates: start: 20240524, end: 20240529
  62. Recombinant Human Erythropoietin Injection(CHO cell) [Concomitant]
     Route: 058
     Dates: start: 20240531, end: 20240617
  63. Alfacalcidol Soft Capsules [Concomitant]
     Route: 048
     Dates: start: 20240513, end: 20240514
  64. Jin Shui Bao (TCM) [Concomitant]
     Route: 048
     Dates: start: 20240513, end: 20240514
  65. ACETYLCYSTEINE [Concomitant]
     Active Substance: ACETYLCYSTEINE
     Route: 042
     Dates: start: 20240513, end: 20240514
  66. Acetylcysteine Effervescent Tablets [Concomitant]
     Dosage: DRUG DOSE FIRST ADMINISTERED IS 1 TABLET
     Route: 048
     Dates: start: 20240525, end: 20240604
  67. VORICONAZOLE [Concomitant]
     Active Substance: VORICONAZOLE
     Route: 042
     Dates: start: 20240601, end: 20240617
  68. MEROPENEM [Concomitant]
     Active Substance: MEROPENEM
     Route: 042
     Dates: start: 20240603, end: 20240617
  69. Ganciclovir for Injection [Concomitant]
     Route: 042
     Dates: start: 20240603, end: 20240616
  70. MOXIFLOXACIN HYDROCHLORIDE [Concomitant]
     Active Substance: MOXIFLOXACIN HYDROCHLORIDE
     Route: 048
     Dates: start: 20240604, end: 20240607
  71. LINEZOLID [Concomitant]
     Active Substance: LINEZOLID
     Dosage: DRUG DOSE FIRST ADMINISTERED IS 1 TABLET
     Route: 048
     Dates: start: 20240607
  72. Amphotericin B for Injection [Concomitant]
     Route: 055
     Dates: start: 20240607, end: 20240607
  73. Silymarin Capsules [Concomitant]
     Indication: Adverse event
     Route: 048
     Dates: start: 20240613, end: 20240617

REACTIONS (2)
  - Pleural thickening [Recovered/Resolved]
  - Pulmonary oedema [Recovered/Resolved]

NARRATIVE: CASE EVENT DATE: 20240520
